FAERS Safety Report 22369271 (Version 2)
Quarter: 2024Q2

REPORT INFORMATION
  Report Type: Spontaneous
  Country: US (occurrence: US)
  Receive Date: 20230526
  Receipt Date: 20240418
  Transmission Date: 20240715
  Serious: Yes (Other)
  Sender: FDA-Public Use
  Company Number: US-ABBVIE-5179772

PATIENT
  Sex: Female
  Weight: 90.718 kg

DRUGS (1)
  1. LUPRON DEPOT [Suspect]
     Active Substance: LEUPROLIDE ACETATE
     Indication: Uterine leiomyoma
     Dosage: 3. 75 MG FORM STRENGTH
     Route: 030
     Dates: start: 200301, end: 200307

REACTIONS (22)
  - Blindness [Recovering/Resolving]
  - Pain in extremity [Unknown]
  - Alopecia [Unknown]
  - Eye injury [Not Recovered/Not Resolved]
  - Diabetes mellitus [Not Recovered/Not Resolved]
  - Drug hypersensitivity [Unknown]
  - Weight increased [Recovered/Resolved]
  - Nerve injury [Recovered/Resolved]
  - Liver injury [Unknown]
  - Musculoskeletal disorder [Not Recovered/Not Resolved]
  - Nerve conduction studies abnormal [Unknown]
  - Tooth loss [Unknown]
  - Multi-organ disorder [Not Recovered/Not Resolved]
  - Reproductive tract disorder [Unknown]
  - Paraesthesia [Not Recovered/Not Resolved]
  - Renal injury [Not Recovered/Not Resolved]
  - Hormone level abnormal [Unknown]
  - Neuropathy peripheral [Not Recovered/Not Resolved]
  - Pain in extremity [Unknown]
  - Hypoaesthesia [Not Recovered/Not Resolved]
  - Eye inflammation [Unknown]
  - Inflammation [Unknown]

NARRATIVE: CASE EVENT DATE: 20050101
